FAERS Safety Report 21772291 (Version 1)
Quarter: 2022Q4

REPORT INFORMATION
  Report Type: Report from Study
  Country: US (occurrence: US)
  Receive Date: 20221223
  Receipt Date: 20221223
  Transmission Date: 20230113
  Serious: No
  Sender: FDA-Public Use
  Company Number: US-ABBVIE-4204653

PATIENT
  Sex: Male

DRUGS (3)
  1. HUMIRA [Suspect]
     Active Substance: ADALIMUMAB
     Indication: Product used for unknown indication
     Route: 058
  2. Moderna [Concomitant]
     Indication: COVID-19 immunisation
     Dosage: VACCINE
     Route: 030
     Dates: start: 20220101, end: 20220101
  3. Moderna [Concomitant]
     Indication: COVID-19 immunisation
     Dosage: BOOSTER
     Route: 030

REACTIONS (2)
  - Upper respiratory tract congestion [Not Recovered/Not Resolved]
  - Multiple allergies [Unknown]
